FAERS Safety Report 7609310-8 (Version None)
Quarter: 2011Q3

REPORT INFORMATION
  Report Type: 
  Country: None (occurrence: None)
  Receive Date: 20110714
  Receipt Date: 20110705
  Transmission Date: 20111222
  Serious: Yes (Other)
  Sender: FDA-Public Use
  Company Number: PHHY2011US55181

PATIENT
  Sex: Female
  Weight: 65.76 kg

DRUGS (7)
  1. OMEPRAZOLE [Concomitant]
     Dosage: 20 MG, QD
  2. GILENYA [Suspect]
     Indication: MULTIPLE SCLEROSIS
     Dosage: 0.5 MG, QD
     Route: 048
     Dates: start: 20110506
  3. EXCEDRIN (MIGRAINE) [Concomitant]
     Dosage: UNK UKN, PRN
  4. GABAPENTIN [Concomitant]
     Dosage: 300 MG, QHS
  5. TREXIMET [Concomitant]
     Indication: HEADACHE
     Dosage: UNK UKN, PRN
  6. CALCIUM CARBONATE [Concomitant]
  7. BACLOFEN [Concomitant]
     Dosage: 20 MG, QHS

REACTIONS (10)
  - VERTIGO [None]
  - NAUSEA [None]
  - FLUID RETENTION [None]
  - SWELLING FACE [None]
  - DECREASED APPETITE [None]
  - LEUKOPENIA [None]
  - WHITE BLOOD CELL COUNT DECREASED [None]
  - WEIGHT INCREASED [None]
  - VISION BLURRED [None]
  - EYE SWELLING [None]
